FAERS Safety Report 13506307 (Version 1)
Quarter: 2017Q2

REPORT INFORMATION
  Report Type: Spontaneous
  Country: US (occurrence: US)
  Receive Date: 20170502
  Receipt Date: 20170502
  Transmission Date: 20170830
  Serious: No
  Sender: FDA-Public Use
  Company Number: US-ROCHE-1319452

PATIENT
  Age: 56 Year
  Sex: Female

DRUGS (2)
  1. CYTOXAN [Concomitant]
     Active Substance: CYCLOPHOSPHAMIDE
     Dosage: DAILY FOR 21 DAYS, 7 DAYS OFF
     Route: 048
     Dates: start: 201311
  2. AVASTIN [Suspect]
     Active Substance: BEVACIZUMAB
     Indication: GASTROINTESTINAL NEOPLASM
     Route: 042
     Dates: start: 201311

REACTIONS (3)
  - Vomiting [Unknown]
  - Fatigue [Unknown]
  - Abdominal distension [Unknown]
